FAERS Safety Report 7224588-0 (Version None)
Quarter: 2011Q1

REPORT INFORMATION
  Report Type: 
  Country: None (occurrence: None)
  Receive Date: 20110113
  Receipt Date: 20101223
  Transmission Date: 20110831
  Serious: No
  Sender: FDA-Public Use
  Company Number: US-PFIZER INC-US-WYE-H18440010

PATIENT
  Sex: Female

DRUGS (1)
  1. PROTONIX [Suspect]

REACTIONS (2)
  - EATING DISORDER [None]
  - MALAISE [None]
